FAERS Safety Report 11328554 (Version 1)
Quarter: 2015Q3

REPORT INFORMATION
  Report Type: Report from Study
  Country: TR (occurrence: TR)
  Receive Date: 20150731
  Receipt Date: 20150731
  Transmission Date: 20151125
  Serious: Yes (Other)
  Sender: FDA-Public Use
  Company Number: PHHY2015TR084441

PATIENT
  Sex: Male
  Weight: 40 kg

DRUGS (1)
  1. SOMATROPIN [Suspect]
     Active Substance: SOMATROPIN
     Indication: GROWTH HORMONE DEFICIENCY
     Dosage: UNK, QD (1,2 MG/DAY FOR 5 DAYS AND 1 MG/DAY FOR 2 DAYS)
     Route: 058
     Dates: start: 20150709

REACTIONS (1)
  - Off label use [Not Recovered/Not Resolved]
